FAERS Safety Report 15270700 (Version 1)
Quarter: 2018Q3

REPORT INFORMATION
  Report Type: Spontaneous
  Country: US (occurrence: US)
  Receive Date: 20180813
  Receipt Date: 20180813
  Transmission Date: 20181010
  Serious: No
  Sender: FDA-Public Use
  Company Number: US-SA-2018SA213021

PATIENT
  Sex: Male

DRUGS (2)
  1. CLARITINE [Concomitant]
     Active Substance: LORATADINE
  2. ALLEGRA ALLERGY [Suspect]
     Active Substance: FEXOFENADINE HYDROCHLORIDE

REACTIONS (1)
  - Blood pressure increased [Recovered/Resolved]
